FAERS Safety Report 10227473 (Version 1)
Quarter: 2014Q2

REPORT INFORMATION
  Report Type: Spontaneous
  Country: US (occurrence: US)
  Receive Date: 20140610
  Receipt Date: 20140610
  Transmission Date: 20141212
  Serious: No
  Sender: FDA-Public Use
  Company Number: US-VIIV HEALTHCARE LIMITED-A1060998A

PATIENT
  Age: 52 Year
  Sex: Female

DRUGS (2)
  1. TIVICAY [Suspect]
     Indication: HIV INFECTION
     Dosage: 50MG PER DAY
     Route: 048
     Dates: start: 20131211, end: 20140203
  2. EPZICOM [Concomitant]

REACTIONS (3)
  - Nausea [Recovered/Resolved]
  - Eructation [Unknown]
  - Vomiting [Unknown]
